FAERS Safety Report 24636447 (Version 1)
Quarter: 2024Q4

REPORT INFORMATION
  Report Type: Spontaneous
  Country: US (occurrence: US)
  Receive Date: 20241119
  Receipt Date: 20241119
  Transmission Date: 20250115
  Serious: No
  Sender: AMGEN
  Company Number: US-AMGEN-USASP2024225473

PATIENT
  Age: 62 Year
  Sex: Female

DRUGS (7)
  1. APREMILAST [Suspect]
     Active Substance: APREMILAST
     Indication: Lichen planus pemphigoides
     Dosage: UNK
     Route: 065
  2. APREMILAST [Suspect]
     Active Substance: APREMILAST
     Indication: Off label use
  3. DAPSONE [Concomitant]
     Active Substance: DAPSONE
  4. METHOTREXATE [Concomitant]
     Active Substance: METHOTREXATE
  5. HYDROXYCHLOROQUINE [Concomitant]
     Active Substance: HYDROXYCHLOROQUINE
     Dosage: UNK
  6. DUPILUMAB [Concomitant]
     Active Substance: DUPILUMAB
  7. Immunoglobulin [Concomitant]
     Dosage: 2 GRAM/KG/MONTH IV AND LATER SUBCUTANEOUS

REACTIONS (4)
  - Oral discomfort [Not Recovered/Not Resolved]
  - Drug effective for unapproved indication [Unknown]
  - Therapeutic product effect incomplete [Unknown]
  - Off label use [Unknown]
